FAERS Safety Report 4792929-X (Version None)
Quarter: 2005Q4

REPORT INFORMATION
  Report Type: 
  Country: None (occurrence: None)
  Receive Date: 20051010
  Receipt Date: 20050930
  Transmission Date: 20060501
  Serious: Yes (Other)
  Sender: FDA-Public Use
  Company Number: PHEH2005US10950

PATIENT
  Age: 51 Year
  Sex: Female

DRUGS (3)
  1. DIOVAN [Suspect]
     Indication: HYPERTENSION
     Dosage: 160 MG, QD
     Route: 048
     Dates: start: 20030101
  2. ZOCOR [Concomitant]
  3. FOSAMAX [Concomitant]

REACTIONS (7)
  - DYSPNOEA EXACERBATED [None]
  - DYSPNOEA EXERTIONAL [None]
  - EPISCLERITIS [None]
  - MUSCLE SPASMS [None]
  - MUSCULOSKELETAL DISCOMFORT [None]
  - NECK PAIN [None]
  - OXYGEN SATURATION DECREASED [None]
